FAERS Safety Report 25612103 (Version 2)
Quarter: 2025Q3

REPORT INFORMATION
  Report Type: Spontaneous
  Country: PK (occurrence: PK)
  Receive Date: 20250728
  Receipt Date: 20250922
  Transmission Date: 20251021
  Serious: Yes (Other)
  Sender: AMGEN
  Company Number: PK-PFIZER INC-PV202500016877

PATIENT
  Age: 57 Year
  Sex: Male

DRUGS (11)
  1. ENBREL [Suspect]
     Active Substance: ETANERCEPT
     Indication: Psoriatic arthropathy
     Dosage: 50 MG, WEEKLY
     Route: 058
     Dates: start: 202312
  2. DELTACORTRIL [Concomitant]
     Active Substance: PREDNISOLONE
     Dosage: 5 MG, 1X/DAY (1-0-0-0 AFTER MEAL)
     Route: 065
  3. METHOTREXATE SODIUM [Concomitant]
     Active Substance: METHOTREXATE SODIUM
     Indication: Product used for unknown indication
     Dosage: 4 DF, 2X/WEEK (4 TAB, 2 TIMES A WEEK, AFTER MEAL (EVERY SAT, SUN, 2 HOURS AFTER BREAKFAST) CONTINUE)
  4. Cytotrexate [Concomitant]
     Indication: Product used for unknown indication
     Dosage: 4 DF, 2X/WEEK (4 TAB, 2 TIMES A WEEK, AFTER MEAL (EVERY SAT, SUN, 2 HOURS AFTER BREAKFAST) CONTINUE)
     Route: 065
  5. Xobix [Concomitant]
     Indication: Product used for unknown indication
     Route: 065
  6. Esso [Concomitant]
     Indication: Product used for unknown indication
     Dosage: 40 MG, 1X/DAY (1-0-0-0 BEFORE MEAL)
  7. FOLIC ACID [Concomitant]
     Active Substance: FOLIC ACID
     Indication: Product used for unknown indication
     Dosage: 5 MG, 1X/DAY (1 TABLET ONCE A DAY, OFF ON SAT AND SUNDAY)
  8. Vita 6 [Concomitant]
     Indication: Product used for unknown indication
     Dosage: 1 DF, 1X/DAY (1 TABLETS, ONCE A DAY, BEFORE MEAL, FOR 2 MONTHS)
     Route: 065
  9. Rin [Concomitant]
     Indication: Product used for unknown indication
     Dosage: 2 DF, 1X/DAY (2-0-0-0, BEFORE MEAL)
  10. METHOTREXATE [Concomitant]
     Active Substance: METHOTREXATE
     Indication: Product used for unknown indication
     Dosage: 20 MG, WEEKLY
     Route: 065
  11. PREDNISONE [Concomitant]
     Active Substance: PREDNISONE
     Dosage: 2.5 MG, DAILY

REACTIONS (8)
  - Diabetes mellitus [Unknown]
  - Diabetic nephropathy [Unknown]
  - Condition aggravated [Unknown]
  - Interferon gamma release assay positive [Unknown]
  - Blood pressure systolic increased [Unknown]
  - Arthralgia [Unknown]
  - C-reactive protein increased [Unknown]
  - Glycosylated haemoglobin increased [Unknown]

NARRATIVE: CASE EVENT DATE: 20241204
